FAERS Safety Report 15563580 (Version 1)
Quarter: 2018Q4

REPORT INFORMATION
  Report Type: Spontaneous
  Country: US (occurrence: US)
  Receive Date: 20181029
  Receipt Date: 20181029
  Transmission Date: 20190205
  Serious: No
  Sender: FDA-Public Use
  Company Number: US-TEIKOKU PHARMA USA-TPU2018-00678

PATIENT
  Sex: Female
  Weight: 86.26 kg

DRUGS (1)
  1. LIDOCAINE PATCH [Suspect]
     Active Substance: LIDOCAINE
     Indication: MULTIPLE SCLEROSIS
     Dosage: 1 PATCH CUT UP INTO 4 PIECES, APPLIED TO EITHER NECK, ELBOW, WRIST, KNEE, SOMETIMES MORE THAN 12 HOU
     Route: 061

REACTIONS (2)
  - Incorrect product administration duration [Unknown]
  - Fibromyalgia [Not Recovered/Not Resolved]
